FAERS Safety Report 7179801-5 (Version None)
Quarter: 2010Q4

REPORT INFORMATION
  Report Type: 
  Country: None (occurrence: None)
  Receive Date: 20101221
  Receipt Date: 20101208
  Transmission Date: 20110411
  Serious: Yes (Disabling, Other)
  Sender: FDA-Public Use
  Company Number: US-ROCHE-727287

PATIENT
  Sex: Male
  Weight: 81.6 kg

DRUGS (1)
  1. ACCUTANE [Suspect]
     Indication: ACNE
     Route: 065
     Dates: start: 19970203, end: 19970901

REACTIONS (14)
  - BLOOD CHOLESTEROL INCREASED [None]
  - BLOOD TRIGLYCERIDES INCREASED [None]
  - COLITIS ULCERATIVE [None]
  - DEPRESSION [None]
  - DERMATITIS [None]
  - DRY EYE [None]
  - EPISTAXIS [None]
  - GASTROINTESTINAL INJURY [None]
  - HEADACHE [None]
  - LIP DRY [None]
  - NASAL DRYNESS [None]
  - PAIN IN EXTREMITY [None]
  - RASH [None]
  - SUICIDAL IDEATION [None]
